FAERS Safety Report 4382166-5 (Version None)
Quarter: 2004Q2

REPORT INFORMATION
  Report Type: 
  Country: None (occurrence: None)
  Receive Date: 20040618
  Receipt Date: 20040618
  Transmission Date: 20050107
  Serious: Yes (Other)
  Sender: FDA-Public Use
  Company Number: None

PATIENT
  Age: 74 Year
  Sex: Male
  Weight: 77.1 kg

DRUGS (6)
  1. TERAZOSIN 5 MG CAP [Suspect]
  2. FINASTERIDE [Suspect]
  3. ATENOLOL [Concomitant]
  4. RANITIDINE [Concomitant]
  5. FELODIPINE [Concomitant]
  6. OMEPRAZOLE [Concomitant]

REACTIONS (2)
  - DIZZINESS [None]
  - NIGHT SWEATS [None]
